FAERS Safety Report 17013798 (Version 1)
Quarter: 2019Q4

REPORT INFORMATION
  Report Type: Report from Study
  Country: None (occurrence: TR)
  Receive Date: 20191110
  Receipt Date: 20191110
  Transmission Date: 20200122
  Serious: Yes (Hospitalization, Other)
  Sender: FDA-Public Use
  Company Number: TR-ABBVIE-19K-161-2994763-00

PATIENT
  Age: 64 Year
  Sex: Male

DRUGS (4)
  1. PK-MERZ [Concomitant]
     Active Substance: AMANTADINE
     Indication: PARKINSON^S DISEASE
     Dosage: 2X2
     Route: 048
  2. DUODOPA [Suspect]
     Active Substance: CARBIDOPA\LEVODOPA
     Indication: PARKINSON^S DISEASE
     Dosage: MORNING DOSE (ML): 6.00 CONTINUOUS DOSE (ML): 3.40 EXTRA DOSE (ML): 1.00
     Route: 050
     Dates: start: 20181030
  3. MADOPAR HBS [Concomitant]
     Active Substance: BENSERAZIDE HYDROCHLORIDE\LEVODOPA
     Indication: PARKINSON^S DISEASE
     Route: 048
  4. DODEX [Concomitant]
     Active Substance: CYANOCOBALAMIN
     Indication: VITAMIN SUPPLEMENTATION
     Route: 030
     Dates: start: 201710

REACTIONS (3)
  - Incontinence [Not Recovered/Not Resolved]
  - Post procedural infection [Recovered/Resolved]
  - Benign prostatic hyperplasia [Unknown]

NARRATIVE: CASE EVENT DATE: 201910
